FAERS Safety Report 23283807 (Version 2)
Quarter: 2024Q1

REPORT INFORMATION
  Report Type: Spontaneous
  Country: US (occurrence: US)
  Receive Date: 20231211
  Receipt Date: 20240104
  Transmission Date: 20240410
  Serious: No
  Sender: FDA-Public Use
  Company Number: US-ABBVIE-5531941

PATIENT
  Age: 55 Year
  Sex: Female

DRUGS (2)
  1. RINVOQ [Suspect]
     Active Substance: UPADACITINIB
     Indication: Colitis ulcerative
     Dosage: FORM STRENGTH: 45 MG END DATE:2023
     Route: 048
     Dates: start: 202305
  2. RINVOQ [Suspect]
     Active Substance: UPADACITINIB
     Indication: Colitis ulcerative
     Dosage: FORM STRENGTH: 30 MG?FIRST ADMIN DATE 2023
     Route: 048

REACTIONS (2)
  - Oral candidiasis [Recovering/Resolving]
  - Mouth ulceration [Unknown]

NARRATIVE: CASE EVENT DATE: 20230101
